FAERS Safety Report 15584223 (Version 1)
Quarter: 2018Q4

REPORT INFORMATION
  Report Type: Spontaneous
  Country: US (occurrence: US)
  Receive Date: 20181105
  Receipt Date: 20181105
  Transmission Date: 20190205
  Serious: No
  Sender: FDA-Public Use
  Company Number: US-BIOGEN-2018BI00653179

PATIENT
  Sex: Female

DRUGS (1)
  1. PLEGRIDY [Suspect]
     Active Substance: PEGINTERFERON BETA-1A
     Indication: MULTIPLE SCLEROSIS
     Route: 058
     Dates: start: 20180216, end: 20181019

REACTIONS (6)
  - Anxiety [Unknown]
  - Insomnia [Unknown]
  - Night sweats [Unknown]
  - Balance disorder [Unknown]
  - Depression [Unknown]
  - Headache [Unknown]
